FAERS Safety Report 10078415 (Version 1)
Quarter: 2014Q2

REPORT INFORMATION
  Report Type: Spontaneous
  Country: US (occurrence: None)
  Receive Date: 20140401
  Receipt Date: 20140401
  Transmission Date: 20141212
  Serious: Yes (Other)
  Sender: FDA-Public Use
  Company Number: HA13-127-AE

PATIENT
  Sex: Male

DRUGS (1)
  1. SMZ-TMP [Suspect]
     Indication: STAPHYLOCOCCAL SKIN INFECTION
     Route: 048

REACTIONS (3)
  - Stevens-Johnson syndrome [None]
  - Oral mucosal blistering [None]
  - Rash [None]
